FAERS Safety Report 9863825 (Version 3)
Quarter: 2014Q4

REPORT INFORMATION
  Report Type: Spontaneous
  Country: US (occurrence: US)
  Receive Date: 20140203
  Receipt Date: 20141203
  Transmission Date: 20150529
  Serious: Yes (Hospitalization, Other)
  Sender: FDA-Public Use
  Company Number: US-GLAXOSMITHKLINE-A1035998A

PATIENT
  Age: 62 Year
  Sex: Female

DRUGS (1)
  1. AVANDIA [Suspect]
     Active Substance: ROSIGLITAZONE MALEATE
     Indication: DIABETES MELLITUS
     Dosage: 8 MG, BID
     Route: 048
     Dates: start: 20070117, end: 20100923

REACTIONS (10)
  - Myocardial infarction [Unknown]
  - Ischaemic cardiomyopathy [Unknown]
  - Cardiogenic shock [Unknown]
  - Sinus node dysfunction [Unknown]
  - Mitral valve disease [Unknown]
  - Atrial fibrillation [Unknown]
  - Pleural effusion [Unknown]
  - Cardiac failure congestive [Unknown]
  - Pulmonary oedema [Unknown]
  - Coronary artery disease [Unknown]

NARRATIVE: CASE EVENT DATE: 20110306
